FAERS Safety Report 6537028-1 (Version None)
Quarter: 2010Q1

REPORT INFORMATION
  Report Type: 
  Country: None (occurrence: None)
  Receive Date: 20100110
  Receipt Date: 20100105
  Transmission Date: 20100710
  Serious: Yes (Hospitalization)
  Sender: FDA-Public Use
  Company Number: 2010000032

PATIENT
  Age: 62 Year
  Sex: Male
  Weight: 127.0072 kg

DRUGS (12)
  1. TREANDA [Suspect]
     Indication: DIFFUSE LARGE B-CELL LYMPHOMA
     Dosage: (275 MG,DAY 1 + 2), INTRAVENOUS
     Route: 042
     Dates: start: 20091022, end: 20091218
  2. COLCHICINE (COLCHICINE) [Concomitant]
  3. ALLOPURINOL [Concomitant]
  4. ASPIRIN [Concomitant]
  5. COUMADIN [Concomitant]
  6. LASIX [Concomitant]
  7. LIPITOR [Concomitant]
  8. POTASSIUM (POTASSIUM) [Concomitant]
  9. CATAPRIL (CAPTOPRIL) [Concomitant]
  10. COREG [Concomitant]
  11. GLYBURIDE [Concomitant]
  12. JANUMET (SITAGLIPTIN) [Concomitant]

REACTIONS (2)
  - DIARRHOEA [None]
  - LIVER FUNCTION TEST ABNORMAL [None]
